FAERS Safety Report 18417334 (Version 5)
Quarter: 2021Q2

REPORT INFORMATION
  Report Type: Spontaneous
  Country: US (occurrence: US)
  Receive Date: 20201022
  Receipt Date: 20210526
  Transmission Date: 20210717
  Serious: Yes (Hospitalization)
  Sender: FDA-Public Use
  Company Number: 2020SGN02666

PATIENT
  Age: 30 Year
  Sex: Female

DRUGS (5)
  1. TUKYSA [Suspect]
     Active Substance: TUCATINIB
     Dosage: UNK
  2. XELODA [Suspect]
     Active Substance: CAPECITABINE
     Indication: BREAST CANCER FEMALE
  3. DEXAMETHASONE. [Concomitant]
     Active Substance: DEXAMETHASONE
  4. TUKYSA [Suspect]
     Active Substance: TUCATINIB
     Indication: BREAST CANCER FEMALE
     Dosage: 300 MG, BID
     Route: 048
  5. HERCEPTIN [Concomitant]
     Active Substance: TRASTUZUMAB

REACTIONS (15)
  - Throat clearing [Unknown]
  - Dry skin [Not Recovered/Not Resolved]
  - Brain oedema [Unknown]
  - Hypersensitivity [Unknown]
  - Asthenia [Unknown]
  - Skin discolouration [Not Recovered/Not Resolved]
  - Unevaluable event [Unknown]
  - Nail disorder [Unknown]
  - Diarrhoea [Not Recovered/Not Resolved]
  - Biopsy brain [Unknown]
  - Product dose omission issue [Unknown]
  - Unevaluable event [Recovered/Resolved]
  - Biopsy [Unknown]
  - Respiration abnormal [Unknown]
  - Stomatitis [Not Recovered/Not Resolved]

NARRATIVE: CASE EVENT DATE: 202105
